FAERS Safety Report 8989935 (Version 4)
Quarter: 2013Q2

REPORT INFORMATION
  Report Type: Spontaneous
  Country: US (occurrence: US)
  Receive Date: 20121228
  Receipt Date: 20130613
  Transmission Date: 20140414
  Serious: Yes (Other)
  Sender: FDA-Public Use
  Company Number: US-ASTRAZENECA-2012SE94726

PATIENT
  Age: 44 Year
  Sex: Female

DRUGS (6)
  1. SEROQUEL XR [Suspect]
     Indication: SCHIZOAFFECTIVE DISORDER BIPOLAR TYPE
     Route: 048
  2. SEROQUEL XR [Suspect]
     Indication: ANXIETY DISORDER
     Route: 048
  3. SEROQUEL XR [Suspect]
     Indication: SCHIZOAFFECTIVE DISORDER BIPOLAR TYPE
     Route: 048
     Dates: start: 2008
  4. SEROQUEL XR [Suspect]
     Indication: ANXIETY DISORDER
     Route: 048
     Dates: start: 2008
  5. SEROQUEL XR [Suspect]
     Indication: SCHIZOAFFECTIVE DISORDER BIPOLAR TYPE
     Route: 048
  6. SEROQUEL XR [Suspect]
     Indication: ANXIETY DISORDER
     Route: 048

REACTIONS (8)
  - Cerebrovascular accident [Unknown]
  - Musculoskeletal disorder [Unknown]
  - Hallucination, auditory [Unknown]
  - Feeling abnormal [Unknown]
  - Aphagia [Unknown]
  - Insomnia [Unknown]
  - Hallucination [Unknown]
  - Intentional drug misuse [Unknown]
